FAERS Safety Report 6686659-7 (Version None)
Quarter: 2010Q2

REPORT INFORMATION
  Report Type: 
  Country: None (occurrence: None)
  Receive Date: 20100414
  Receipt Date: 20100330
  Transmission Date: 20101027
  Serious: Yes (Hospitalization)
  Sender: FDA-Public Use
  Company Number: 2010000955

PATIENT
  Age: 52 Year
  Sex: Male

DRUGS (15)
  1. ERLOTINIB HYDROCHLORIDE [Suspect]
     Indication: GLIOBLASTOMA
     Dosage: (150 MG), ORAL
     Route: 048
     Dates: start: 20091105, end: 20100117
  2. BEVACIZUMAB [Suspect]
     Indication: GLIOBLASTOMA
     Dosage: (10 MG/KG,Q2W),INTRAVENOUS
     Route: 042
     Dates: start: 20090309, end: 20100302
  3. TEMZOLOMIDE [Suspect]
     Indication: GLIOBLASTOMA
     Dosage: (75 MG/M2),ORAL
     Route: 048
     Dates: start: 20091105, end: 20100303
  4. SULFAMETHOXAZOLE [Suspect]
     Indication: PNEUMOCYSTIS JIROVECI INFECTION
     Dates: start: 20100303
  5. SULFAMETHOXAZOLE [Suspect]
     Indication: PROPHYLAXIS
     Dates: start: 20100303
  6. COLACE (DOCUSATE) [Concomitant]
  7. KEPPRA [Concomitant]
  8. SENNA (SENNA) [Concomitant]
  9. MIRALAX [Concomitant]
  10. BENADRYL [Concomitant]
  11. HYDROCORTONE [Concomitant]
  12. HYROXYZINE (HYDROXYZINE) [Concomitant]
  13. CLINDAMYCIN HCL [Concomitant]
  14. BACTRIM [Concomitant]
  15. AMBIEN [Concomitant]

REACTIONS (11)
  - BRUXISM [None]
  - CONVULSION [None]
  - HEADACHE [None]
  - HYPERSENSITIVITY [None]
  - MENTAL STATUS CHANGES [None]
  - MUSCLE RIGIDITY [None]
  - NAUSEA [None]
  - PYREXIA [None]
  - RASH [None]
  - RETCHING [None]
  - TREMOR [None]
